FAERS Safety Report 6756705-0 (Version None)
Quarter: 2010Q2

REPORT INFORMATION
  Report Type: 
  Country: None (occurrence: None)
  Receive Date: 20100604
  Receipt Date: 20100521
  Transmission Date: 20101027
  Serious: Yes (Hospitalization)
  Sender: FDA-Public Use
  Company Number: US-ELI_LILLY_AND_COMPANY-US201004002177

PATIENT
  Sex: Female

DRUGS (11)
  1. FORTEO [Suspect]
     Indication: OSTEOPOROSIS
     Dosage: 20 UG, DAILY (1/D)
  2. HUMALOG [Concomitant]
     Dosage: UNK, AS NEEDED
  3. SYMBICORT [Concomitant]
     Dosage: 2 UNK, 2/D
  4. COLACE [Concomitant]
     Dosage: 100 MG, 2/D
  5. FEOSOL [Concomitant]
     Dosage: 325 MG, 2/D
  6. MULTI-VITAMINS [Concomitant]
     Dosage: 1 UNK, DAILY (1/D)
  7. MIRALAX [Concomitant]
     Dosage: 17 G, DAILY (1/D)
  8. PREDNISONE [Concomitant]
     Dosage: 20 MG, DAILY (1/D)
  9. PRILOSEC [Concomitant]
     Dosage: 40 MG, 2/D
  10. CARAFATE [Concomitant]
     Dosage: 1 G, 2/D
  11. COUMADIN [Concomitant]
     Dosage: 2 MG, UNK
     Dates: start: 20100406

REACTIONS (2)
  - FALL [None]
  - HIP FRACTURE [None]
